FAERS Safety Report 8509132-X (Version None)
Quarter: 2012Q3

REPORT INFORMATION
  Report Type: 
  Country: None (occurrence: None)
  Receive Date: 20120713
  Receipt Date: 20120704
  Transmission Date: 20120928
  Serious: Yes (Other)
  Sender: FDA-Public Use
  Company Number: BR-GLAXOSMITHKLINE-A0984148A

PATIENT
  Sex: Female

DRUGS (3)
  1. DEPAKOTE [Concomitant]
     Dosage: 1TAB THREE TIMES PER DAY
     Dates: start: 20060101
  2. FLUTICASONE PROPIONATE/SALMETEROL [Suspect]
     Indication: PNEUMONIA
     Route: 055
     Dates: start: 20120628, end: 20120703
  3. TOPIRAMATE [Concomitant]
     Dosage: 1TAB THREE TIMES PER DAY
     Dates: start: 20060101

REACTIONS (1)
  - CONVULSION [None]
